FAERS Safety Report 7474660-5 (Version None)
Quarter: 2011Q2

REPORT INFORMATION
  Report Type: 
  Country: None (occurrence: None)
  Receive Date: 20110512
  Receipt Date: 20110428
  Transmission Date: 20111010
  Serious: Yes (Hospitalization)
  Sender: FDA-Public Use
  Company Number: JP-JNJFOC-20110407112

PATIENT
  Age: 26 Year
  Sex: Female

DRUGS (5)
  1. MULTIPLE OTHER MEDICATIONS [Suspect]
     Indication: OVERDOSE
     Route: 065
  2. INVEGA [Suspect]
     Indication: PRODUCT USED FOR UNKNOWN INDICATION
     Route: 048
  3. LIMAS [Concomitant]
     Route: 048
  4. ZYPREXA [Concomitant]
     Route: 048
  5. DEPAS [Concomitant]
     Route: 048

REACTIONS (2)
  - MULTIPLE DRUG OVERDOSE [None]
  - SUICIDE ATTEMPT [None]
